FAERS Safety Report 17923063 (Version 2)
Quarter: 2020Q2

REPORT INFORMATION
  Report Type: Report from Study
  Country: US (occurrence: US)
  Receive Date: 20200622
  Receipt Date: 20200630
  Transmission Date: 20200714
  Serious: Yes (Other)
  Sender: FDA-Public Use
  Company Number: US-GLAXOSMITHKLINE-US2020AMR090772

PATIENT
  Age: 81 Year
  Sex: Female

DRUGS (4)
  1. NIRAPARIB [Suspect]
     Active Substance: NIRAPARIB
     Dosage: 300 MG, QD
     Dates: start: 20200527
  2. METHOTREXATE. [Concomitant]
     Active Substance: METHOTREXATE
     Indication: RHEUMATOID ARTHRITIS
     Dosage: UNK
  3. NIRAPARIB [Suspect]
     Active Substance: NIRAPARIB
     Dosage: 300 MG, QD
     Dates: start: 20200527
  4. NIRAPARIB [Suspect]
     Active Substance: NIRAPARIB
     Indication: OVARIAN CANCER
     Dosage: 300 MG DAILY
     Dates: start: 20200515

REACTIONS (10)
  - Asthenia [Unknown]
  - Condition aggravated [Not Recovered/Not Resolved]
  - Oral pain [Unknown]
  - Rheumatoid arthritis [Recovering/Resolving]
  - Product dose omission [Unknown]
  - Insomnia [Unknown]
  - Memory impairment [Unknown]
  - Headache [Unknown]
  - Arthritis [Unknown]
  - Nausea [Recovering/Resolving]
